FAERS Safety Report 8781714 (Version 2)
Quarter: 2012Q4

REPORT INFORMATION
  Report Type: 
  Country: KZ (occurrence: KZ)
  Receive Date: 20120913
  Receipt Date: 20120927
  Transmission Date: 20130627
  Serious: Yes (Death)
  Sender: FDA-Public Use
  Company Number: KZ-JNJFOC-20120903750

PATIENT
  Age: 52 Year
  Sex: Male
  Weight: 70 kg

DRUGS (4)
  1. REMICADE [Suspect]
     Indication: ENTEROCOLITIS
     Route: 042
  2. ZOVIRAX [Suspect]
     Indication: HERPES VIRUS INFECTION
     Route: 065
  3. SULFASALAZINE [Concomitant]
     Route: 065
  4. NSAID^S [Concomitant]
     Route: 065

REACTIONS (2)
  - Radiation sickness syndrome [Fatal]
  - Herpes virus infection [Unknown]
